FAERS Safety Report 9785312 (Version 3)
Quarter: 2014Q1

REPORT INFORMATION
  Report Type: Report from Study
  Country: CA (occurrence: CA)
  Receive Date: 20131227
  Receipt Date: 20140110
  Transmission Date: 20141002
  Serious: Yes (Hospitalization)
  Sender: FDA-Public Use
  Company Number: CA-JNJFOC-20130404914

PATIENT
  Age: 31 Year
  Sex: Male
  Weight: 90 kg

DRUGS (10)
  1. REMICADE [Suspect]
     Indication: COLITIS ULCERATIVE
     Route: 042
     Dates: start: 20131219
  2. REMICADE [Suspect]
     Indication: COLITIS ULCERATIVE
     Route: 042
     Dates: start: 20120228
  3. REMICADE [Suspect]
     Indication: COLITIS ULCERATIVE
     Route: 042
     Dates: start: 20130225
  4. REMICADE [Suspect]
     Indication: COLITIS ULCERATIVE
     Dosage: 52 WEEKS
     Route: 042
     Dates: start: 20110728
  5. PANTOPRAZOLE [Concomitant]
     Route: 065
  6. SALOFALK [Concomitant]
     Route: 065
  7. LOMOTIL [Concomitant]
     Dosage: PRN
     Route: 048
  8. BENADRYL [Concomitant]
     Indication: PREMEDICATION
     Route: 042
  9. SOLU-CORTEF [Concomitant]
     Indication: PREMEDICATION
     Route: 042
  10. TYLENOL [Concomitant]
     Indication: PREMEDICATION
     Route: 048

REACTIONS (6)
  - Infusion related reaction [Recovered/Resolved]
  - Flushing [Recovering/Resolving]
  - Urticaria [Recovered/Resolved]
  - Dysphagia [Not Recovered/Not Resolved]
  - Chest discomfort [Recovered/Resolved]
  - Throat tightness [Not Recovered/Not Resolved]
